FAERS Safety Report 21331647 (Version 2)
Quarter: 2022Q4

REPORT INFORMATION
  Report Type: Report from Study
  Country: US (occurrence: US)
  Receive Date: 20220914
  Receipt Date: 20221227
  Transmission Date: 20230113
  Serious: Yes (Other)
  Sender: FDA-Public Use
  Company Number: US-NOVARTISPH-NVSC2022US203867

PATIENT
  Sex: Female

DRUGS (1)
  1. ENTRESTO [Suspect]
     Active Substance: SACUBITRIL\VALSARTAN
     Indication: Product used for unknown indication
     Dosage: UNK
     Route: 048

REACTIONS (9)
  - Ejection fraction decreased [Unknown]
  - Cardiac disorder [Unknown]
  - Heart rate increased [Unknown]
  - Gait disturbance [Unknown]
  - Dyspnoea exertional [Not Recovered/Not Resolved]
  - Hiatus hernia [Unknown]
  - Nausea [Unknown]
  - Dizziness [Unknown]
  - Incorrect product formulation administered [Unknown]
